FAERS Safety Report 9523641 (Version 1)
Quarter: 2013Q3

REPORT INFORMATION
  Report Type: Spontaneous
  Country: US (occurrence: US)
  Receive Date: 20130913
  Receipt Date: 20130913
  Transmission Date: 20140515
  Serious: Yes (Other)
  Sender: FDA-Public Use
  Company Number: US-RB-058252-13

PATIENT
  Age: 42 Year
  Sex: Female

DRUGS (3)
  1. SUBOXONE TABLET [Suspect]
     Indication: DRUG DEPENDENCE
     Route: 060
     Dates: start: 2007
  2. SUBOXONE TABLET [Suspect]
     Route: 060
  3. BUPRENORPHINE/NALOXONE GENERIC [Suspect]
     Indication: DRUG DEPENDENCE
     Route: 060
     Dates: start: 2011

REACTIONS (7)
  - Prescribed overdose [Recovered/Resolved]
  - Tendon injury [Recovered/Resolved]
  - Pain in extremity [Recovered/Resolved]
  - Wrong technique in drug usage process [Not Recovered/Not Resolved]
  - Foot fracture [Not Recovered/Not Resolved]
  - Ankle fracture [Not Recovered/Not Resolved]
  - Pain [Not Recovered/Not Resolved]
